FAERS Safety Report 23151471 (Version 2)
Quarter: 2023Q4

REPORT INFORMATION
  Report Type: Report from Study
  Country: SE (occurrence: SE)
  Receive Date: 20231107
  Receipt Date: 20231114
  Transmission Date: 20240110
  Serious: Yes (Other)
  Sender: FDA-Public Use
  Company Number: SE-ABBVIE-5478857

PATIENT
  Sex: Female

DRUGS (2)
  1. CARBIDOPA\LEVODOPA [Suspect]
     Active Substance: CARBIDOPA\LEVODOPA
     Indication: Parkinson^s disease
     Dosage: CURRENT DOSES: MORNING DOSE 5ML. CONTINUOUS DOSE 2.0ML/H. EXTRA DOSE 1ML
     Route: 050
  2. CARBIDOPA\LEVODOPA [Suspect]
     Active Substance: CARBIDOPA\LEVODOPA
     Dosage: THERAPY DURATION: REMAINS AT 16H
     Route: 050
     Dates: start: 20140224

REACTIONS (8)
  - Subarachnoid haemorrhage [Not Recovered/Not Resolved]
  - Cervical vertebral fracture [Not Recovered/Not Resolved]
  - Dementia [Unknown]
  - Fall [Not Recovered/Not Resolved]
  - Musculoskeletal stiffness [Not Recovered/Not Resolved]
  - Device leakage [Unknown]
  - Device physical property issue [Unknown]
  - Stoma site erythema [Unknown]

NARRATIVE: CASE EVENT DATE: 20230101
